FAERS Safety Report 4869781-7 (Version None)
Quarter: 2005Q4

REPORT INFORMATION
  Report Type: 
  Country: None (occurrence: None)
  Receive Date: 20051223
  Receipt Date: 20051212
  Transmission Date: 20060501
  Serious: Yes (Hospitalization)
  Sender: FDA-Public Use
  Company Number: TRP_0669_2005

PATIENT
  Age: 64 Year
  Sex: Female

DRUGS (7)
  1. RIBASPHERE [Suspect]
     Indication: HEPATITIS C
     Dosage: DF PO
     Route: 048
     Dates: start: 20050324
  2. PEG-INTRON [Suspect]
     Indication: HEPATITIS C
     Dosage: DF SC
     Route: 058
     Dates: start: 20050324
  3. WELLBUTRIN [Suspect]
     Dosage: DF
  4. WELLBUTRIN [Suspect]
     Dosage: DF
     Dates: start: 20051101
  5. PROVIGIL [Suspect]
     Dosage: DF
  6. EFFEXOR XR [Concomitant]
  7. TOPAMAX [Concomitant]

REACTIONS (6)
  - ABDOMINAL PAIN UPPER [None]
  - APHASIA [None]
  - ASTHENIA [None]
  - DYSPHEMIA [None]
  - HYPOAESTHESIA [None]
  - LOSS OF CONTROL OF LEGS [None]
